FAERS Safety Report 8649258 (Version 4)
Quarter: 2013Q2

REPORT INFORMATION
  Report Type: Spontaneous
  Country: US (occurrence: None)
  Receive Date: 20120621
  Receipt Date: 20130507
  Transmission Date: 20140414
  Serious: Yes (Other)
  Sender: FDA-Public Use
  Company Number: ADR-2010-9092

PATIENT
  Sex: Male

DRUGS (1)
  1. LIORESAL [Suspect]
     Indication: MUSCLE SPASTICITY

REACTIONS (7)
  - No therapeutic response [None]
  - Sexual dysfunction [None]
  - Hypoaesthesia [None]
  - Overdose [None]
  - Pruritus [None]
  - Ocular hyperaemia [None]
  - Eye pruritus [None]
